FAERS Safety Report 10292597 (Version 1)
Quarter: 2014Q3

REPORT INFORMATION
  Report Type: Spontaneous
  Country: US (occurrence: US)
  Receive Date: 20140710
  Receipt Date: 20140710
  Transmission Date: 20150326
  Serious: No
  Sender: FDA-Public Use
  Company Number: US-PURDUE-USA-2013-0107399

PATIENT
  Sex: Male

DRUGS (2)
  1. MORPHINE SULFATE (SIMILAR TO NDA 19-516) [Concomitant]
     Active Substance: MORPHINE SULFATE
     Indication: BREAKTHROUGH PAIN
     Dosage: 30 MG, BID
  2. BUTRANS [Suspect]
     Active Substance: BUPRENORPHINE
     Indication: PAIN
     Dosage: 20 MCG/HR, WEEKLY
     Route: 062

REACTIONS (10)
  - Application site pruritus [Unknown]
  - Drug ineffective [Unknown]
  - Pain [Unknown]
  - Product adhesion issue [Unknown]
  - Drug effect increased [Unknown]
  - Application site erythema [Unknown]
  - Application site irritation [Unknown]
  - Application site rash [Unknown]
  - Product physical issue [Unknown]
  - Drug effect decreased [Unknown]
